FAERS Safety Report 8315087-3 (Version None)
Quarter: 2012Q2

REPORT INFORMATION
  Report Type: 
  Country: None (occurrence: None)
  Receive Date: 20120426
  Receipt Date: 20120416
  Transmission Date: 20120825
  Serious: Yes (Death, Other)
  Sender: FDA-Public Use
  Company Number: IT-CELGENEUS-083-21880-12041572

PATIENT

DRUGS (3)
  1. REVLIMID [Suspect]
     Dosage: 25 MILLIGRAM
     Route: 048
     Dates: start: 20110404, end: 20110429
  2. DEXAMETHASONE [Concomitant]
     Indication: NON-HODGKIN'S LYMPHOMA
     Route: 065
  3. REVLIMID [Suspect]
     Indication: NON-HODGKIN'S LYMPHOMA
     Dosage: 25 MILLIGRAM
     Route: 048
     Dates: start: 20110218, end: 20110309

REACTIONS (3)
  - NON-HODGKIN'S LYMPHOMA [None]
  - NEUTROPENIA [None]
  - SEPSIS [None]
